FAERS Safety Report 19661017 (Version 3)
Quarter: 2022Q1

REPORT INFORMATION
  Report Type: Spontaneous
  Country: IN (occurrence: IN)
  Receive Date: 20210805
  Receipt Date: 20220308
  Transmission Date: 20220423
  Serious: Yes (Other)
  Sender: FDA-Public Use
  Company Number: IN-PFIZER INC-2021331310

PATIENT
  Age: 63 Year
  Sex: Male
  Weight: 60.8 kg

DRUGS (4)
  1. DACOMITINIB [Suspect]
     Active Substance: DACOMITINIB
     Indication: Lung adenocarcinoma
     Dosage: 45 MG, 1X/DAY
     Route: 048
     Dates: start: 20210323, end: 20210716
  2. DACOMITINIB [Suspect]
     Active Substance: DACOMITINIB
     Dosage: 45 MG, 1X/DAY
     Route: 048
     Dates: start: 20210324
  3. DACOMITINIB [Suspect]
     Active Substance: DACOMITINIB
     Dosage: 30 MG, 1X/DAY (WITH OR WITHOUT FOOD AT THE SAME TIME EACH DAY)
     Route: 048
     Dates: start: 20210716
  4. DACOMITINIB [Suspect]
     Active Substance: DACOMITINIB
     Dosage: 30 MG, 1X/DAY (WITH OR WITHOUT FOOD AT THE SAME TIME EACH DAY)
     Route: 048
     Dates: start: 20210723

REACTIONS (9)
  - Paronychia [Recovering/Resolving]
  - Nail infection [Recovering/Resolving]
  - Neoplasm progression [Unknown]
  - Skin reaction [Recovering/Resolving]
  - Rash [Unknown]
  - Blood pressure increased [Unknown]
  - Haemoglobin decreased [Unknown]
  - White blood cell disorder [Unknown]
  - Red blood cell count decreased [Unknown]

NARRATIVE: CASE EVENT DATE: 20210712
